FAERS Safety Report 5877042-2 (Version None)
Quarter: 2008Q3

REPORT INFORMATION
  Report Type: 
  Country: None (occurrence: None)
  Receive Date: 20080910
  Receipt Date: 20080902
  Transmission Date: 20090109
  Serious: Yes (Hospitalization, Other)
  Sender: FDA-Public Use
  Company Number: PHHY2008JP03618

PATIENT
  Age: 64 Year
  Sex: Female

DRUGS (14)
  1. LUDIOMIL [Suspect]
     Indication: DEPRESSION
     Dosage: 25 MG/DAY
     Route: 048
     Dates: start: 20080204
  2. LUDIOMIL [Suspect]
     Dosage: 50 MG, QD
     Route: 048
     Dates: start: 20080213
  3. LUDIOMIL [Suspect]
     Dosage: 75 MG, QD
     Route: 048
     Dates: start: 20080221
  4. LUDIOMIL [Suspect]
     Dosage: 100MG, DIVIDED INTO 100MG AND 25 MG
     Route: 048
     Dates: start: 20080306
  5. LUDIOMIL [Suspect]
     Dosage: 85MG DAILY, DIVIDED INTO 25MG AND 60MG
     Route: 048
     Dates: start: 20080525
  6. LUDIOMIL [Suspect]
     Dosage: 75MG DAILY, DIVIDED INTO 25MG AND 50MG
     Route: 048
     Dates: start: 20080528
  7. LUDIOMIL [Suspect]
     Dosage: 60MG DAILY, DIVIDED INTO 50MG AND 10MG
     Route: 048
     Dates: start: 20080401
  8. LUDIOMIL [Suspect]
     Dosage: 50 MG, QD
     Route: 048
     Dates: start: 20080405
  9. LUDIOMIL [Suspect]
     Dosage: 35 MG, QD
     Route: 048
     Dates: start: 20080408
  10. LUDIOMIL [Suspect]
     Dosage: 25 MG, QD
     Route: 048
     Dates: start: 20080412
  11. LUDIOMIL [Suspect]
     Dosage: 10 MG, QD
     Route: 048
     Dates: start: 20080415, end: 20080418
  12. MUCOSTA [Concomitant]
     Dosage: 300 MG/DAY
     Route: 048
     Dates: start: 20060701
  13. THYRADIN [Concomitant]
     Dosage: 1 MG DAILY
     Route: 048
     Dates: start: 20060701
  14. DESYREL [Concomitant]
     Dosage: 150 MG/DAY
     Route: 048
     Dates: start: 20060701

REACTIONS (3)
  - CONVERSION DISORDER [None]
  - DRUG INEFFECTIVE [None]
  - HALLUCINATION, VISUAL [None]
